FAERS Safety Report 9547598 (Version 1)
Quarter: 2013Q3

REPORT INFORMATION
  Report Type: Spontaneous
  Country: US (occurrence: US)
  Receive Date: 20130924
  Receipt Date: 20130924
  Transmission Date: 20140515
  Serious: Yes (Other)
  Sender: FDA-Public Use
  Company Number: US-BAYER-2013-112637

PATIENT
  Age: 33 Year
  Sex: Female
  Weight: 87.98 kg

DRUGS (12)
  1. YASMIN [Suspect]
  2. RANITIDINE [Concomitant]
     Dosage: 150 MG, HS
     Route: 048
  3. NEXIUM [Concomitant]
     Dosage: 40 MG, HS
     Route: 048
  4. TOPAMAX [Concomitant]
     Dosage: 50 MG, BID
     Route: 048
  5. SINGULAIR [Concomitant]
     Dosage: 10 MG, QD
     Route: 048
  6. MAXALT MLT [Concomitant]
     Dosage: 10 MG, PRN
  7. ZYRTEC-D [Concomitant]
     Dosage: 2 TIMES DAY
     Route: 048
  8. VERAMYST [Concomitant]
     Dosage: 27.5 MCG AT BEDTIME
  9. ULTRAM [Concomitant]
     Dosage: 50 MG, TID
     Route: 048
  10. VICODIN [Concomitant]
     Indication: PAIN
  11. TORADOL [Concomitant]
  12. ADVIL [Concomitant]

REACTIONS (3)
  - Deep vein thrombosis [Recovered/Resolved]
  - Cholelithiasis [None]
  - Deep vein thrombosis [Recovered/Resolved]
